FAERS Safety Report 8579840-3 (Version None)
Quarter: 2012Q3

REPORT INFORMATION
  Report Type: 
  Country: None (occurrence: None)
  Receive Date: 20120808
  Receipt Date: 20120731
  Transmission Date: 20120928
  Serious: Yes (Other)
  Sender: FDA-Public Use
  Company Number: US-ELI_LILLY_AND_COMPANY-US201208000374

PATIENT
  Sex: Female
  Weight: 113.38 kg

DRUGS (11)
  1. PREDNISONE TAB [Concomitant]
     Dosage: 5 MG, UNKNOWN
     Route: 065
  2. LISINOPRIL [Concomitant]
     Dosage: 7.5 MG, BID
     Route: 065
  3. PROTONIX [Concomitant]
     Dosage: 40 MG, UNKNOWN
     Route: 065
  4. COREG [Concomitant]
     Dosage: 12.5 MG, BID
     Route: 065
  5. ASCORBIC ACID [Concomitant]
     Dosage: 500 MG, UNKNOWN
     Route: 065
  6. CYANOCOBALAMIN [Concomitant]
  7. ADCIRCA [Suspect]
     Dosage: 20 MG, OTHER
     Dates: start: 20120626, end: 20120724
  8. NEPHROCAPS [Concomitant]
     Dosage: UNK, QD
     Route: 065
  9. VITAMIN D [Concomitant]
     Dosage: 400 U, UNKNOWN
     Route: 065
  10. ASPIRIN [Concomitant]
     Dosage: 325 MG, QD
     Route: 065
  11. CELEXA [Concomitant]
     Dosage: 20 MG, UNKNOWN
     Route: 065

REACTIONS (2)
  - THROMBOSIS IN DEVICE [None]
  - OFF LABEL USE [None]
